FAERS Safety Report 5705317-6 (Version None)
Quarter: 2008Q2

REPORT INFORMATION
  Report Type: 
  Country: None (occurrence: None)
  Receive Date: 20080410
  Receipt Date: 20080402
  Transmission Date: 20081010
  Serious: Yes (Hospitalization)
  Sender: FDA-Public Use
  Company Number: 2008-02209

PATIENT
  Age: 37 Year
  Sex: Female

DRUGS (4)
  1. AMOXAPINE [Suspect]
     Indication: DEPRESSION
     Dosage: 75 MG, DAILY, ORAL
     Route: 048
  2. LORAZEPAM [Concomitant]
  3. TRAZODONE HCL [Concomitant]
  4. PAROXETINE HCL [Concomitant]

REACTIONS (1)
  - ACUTE RESPIRATORY DISTRESS SYNDROME [None]
